FAERS Safety Report 9674878 (Version 1)
Quarter: 2013Q4

REPORT INFORMATION
  Report Type: Spontaneous
  Country: FR (occurrence: FR)
  Receive Date: 20131107
  Receipt Date: 20131107
  Transmission Date: 20140711
  Serious: Yes (Hospitalization)
  Sender: FDA-Public Use
  Company Number: PHHY2013FR126074

PATIENT
  Age: 59 Year
  Sex: Male

DRUGS (1)
  1. VOLTARENE LP [Suspect]
     Indication: ARTHRALGIA
     Dosage: 75 MG, BID
     Route: 048
     Dates: start: 20120806, end: 20120809

REACTIONS (2)
  - Phlebitis [Recovered/Resolved with Sequelae]
  - Oedema peripheral [Unknown]
